FAERS Safety Report 16992416 (Version 1)
Quarter: 2019Q4

REPORT INFORMATION
  Report Type: Spontaneous
  Country: US (occurrence: US)
  Receive Date: 20191104
  Receipt Date: 20191104
  Transmission Date: 20200122
  Serious: Yes (Hospitalization)
  Sender: FDA-Public Use
  Company Number: None

PATIENT
  Age: 58 Year
  Sex: Male

DRUGS (7)
  1. VITAMIN B COMPLEX [Concomitant]
     Active Substance: CYANOCOBALAMIN\DEXPANTHENOL\NIACINAMIDE\PYRIDOXINE HYDROCHLORIDE\RIBOFLAVIN 5^-PHOSPHATE SODIUM\THIAMINE HYDROCHLORIDE\VITAMIN B COMPLEX
  2. MULTI VITAMIN [Concomitant]
     Active Substance: VITAMINS
  3. OMEPRAZOLE. [Concomitant]
     Active Substance: OMEPRAZOLE
  4. FISH OIL [Concomitant]
     Active Substance: FISH OIL
  5. VITAMIN D3 [Concomitant]
     Active Substance: CHOLECALCIFEROL
  6. VITAMIN C [Concomitant]
     Active Substance: ASCORBIC ACID
  7. CAPECITABINE. [Suspect]
     Active Substance: CAPECITABINE
     Indication: RECTOSIGMOID CANCER
     Route: 048

REACTIONS (1)
  - Surgery [None]

NARRATIVE: CASE EVENT DATE: 20191101
